FAERS Safety Report 5136321-7 (Version None)
Quarter: 2006Q4

REPORT INFORMATION
  Report Type: 
  Country: None (occurrence: None)
  Receive Date: 20061027
  Receipt Date: 20061019
  Transmission Date: 20070319
  Serious: Yes (Other)
  Sender: FDA-Public Use
  Company Number: IL-GLAXOSMITHKLINE-B0443881A

PATIENT
  Age: 38 Year
  Sex: Female

DRUGS (3)
  1. LAMICTAL [Suspect]
     Indication: DRUG USE FOR UNKNOWN INDICATION
     Route: 065
  2. SEROXAT [Concomitant]
     Route: 065
  3. LITHIUM CARBONATE [Concomitant]
     Route: 065

REACTIONS (1)
  - VAGINAL HAEMORRHAGE [None]
